FAERS Safety Report 4342336-9 (Version None)
Quarter: 2004Q2

REPORT INFORMATION
  Report Type: 
  Country: None (occurrence: None)
  Receive Date: 20040420
  Receipt Date: 20040420
  Transmission Date: 20050107
  Serious: Yes (Other)
  Sender: FDA-Public Use
  Company Number: None

PATIENT
  Age: 22 Year
  Sex: Male
  Weight: 74.8435 kg

DRUGS (3)
  1. SERTRALINE 100 MG PFIZER [Suspect]
     Indication: MAJOR DEPRESSION
     Dosage: 100 MG PO QD
     Route: 048
     Dates: start: 20040303, end: 20040313
  2. ALBUTEROL [Concomitant]
  3. AZMACORT MDI [Concomitant]

REACTIONS (1)
  - ERECTION INCREASED [None]
